FAERS Safety Report 5014303-3 (Version None)
Quarter: 2006Q2

REPORT INFORMATION
  Report Type: 
  Country: None (occurrence: None)
  Receive Date: 20060414
  Receipt Date: 20051229
  Transmission Date: 20061013
  Serious: No
  Sender: FDA-Public Use
  Company Number: 2005SP003987

PATIENT
  Age: 63 Year
  Sex: Male

DRUGS (6)
  1. LUNESTA [Suspect]
     Indication: INITIAL INSOMNIA
     Dosage: 2 MG;HS;ORAL
     Route: 048
     Dates: start: 20050601, end: 20051101
  2. PIOGLITAZONE HCL [Concomitant]
  3. CELEBREX [Concomitant]
  4. LISINOPRIL [Concomitant]
  5. AMITRIPTYLINE HCL [Concomitant]
  6. ATORVASTATIN CALCIUM [Concomitant]

REACTIONS (4)
  - ARTHRALGIA [None]
  - MUSCLE TWITCHING [None]
  - MYALGIA [None]
  - PARADOXICAL DRUG REACTION [None]
